FAERS Safety Report 21651435 (Version 1)
Quarter: 2022Q4

REPORT INFORMATION
  Report Type: Spontaneous
  Country: US (occurrence: None)
  Receive Date: 20221127
  Receipt Date: 20221127
  Transmission Date: 20230113
  Serious: Yes (Hospitalization)
  Sender: FDA-Public Use
  Company Number: None

PATIENT
  Age: 27 Year
  Sex: Male
  Weight: 72 kg

DRUGS (1)
  1. TIANEPTINE [Suspect]
     Active Substance: TIANEPTINE
     Indication: Drug dependence
     Route: 048

REACTIONS (5)
  - Loss of consciousness [None]
  - Delirium [None]
  - Respiratory depression [None]
  - Dyskinesia [None]
  - Anuria [None]

NARRATIVE: CASE EVENT DATE: 20220405
